FAERS Safety Report 11268215 (Version 2)
Quarter: 2015Q3

REPORT INFORMATION
  Report Type: Spontaneous
  Country: IT (occurrence: IT)
  Receive Date: 20150714
  Receipt Date: 20150811
  Transmission Date: 20151125
  Serious: Yes (Death)
  Sender: FDA-Public Use
  Company Number: IT-AMGEN-ITASP2015068611

PATIENT
  Age: 32 Year
  Sex: Male

DRUGS (8)
  1. PROCORALAN [Suspect]
     Active Substance: IVABRADINE
     Indication: TACHYCARDIA
  2. COUMADIN [Concomitant]
     Active Substance: WARFARIN SODIUM
     Dosage: UNK
  3. CARDICOR [Concomitant]
     Active Substance: BISOPROLOL
     Dosage: 5 MG, DAILY
  4. TARGOSID [Concomitant]
     Active Substance: TEICOPLANIN
     Indication: WOUND INFECTION
     Dosage: 400 MG, DAILY
     Dates: start: 20150621
  5. PEPTAZOL                           /01263204/ [Concomitant]
     Dosage: 20 MG, DAILY
  6. PROCORALAN [Suspect]
     Active Substance: IVABRADINE
     Indication: HEART RATE INCREASED
     Dosage: 2.5 MG, BID
     Route: 048
     Dates: start: 20150620, end: 20150623
  7. CARDICOR [Concomitant]
     Active Substance: BISOPROLOL
     Dosage: 3.75 MG, DAILY
     Dates: start: 20150611, end: 20150611
  8. CARDICOR [Concomitant]
     Active Substance: BISOPROLOL
     Dosage: 10 MG, DAILY
     Dates: start: 20150617

REACTIONS (1)
  - Sudden death [Fatal]

NARRATIVE: CASE EVENT DATE: 20150623
